FAERS Safety Report 7359003-X (Version None)
Quarter: 2011Q1

REPORT INFORMATION
  Report Type: 
  Country: None (occurrence: None)
  Receive Date: 20110317
  Receipt Date: 20100914
  Transmission Date: 20110831
  Serious: Yes (Other)
  Sender: FDA-Public Use
  Company Number: US-BAYER-201011105NA

PATIENT
  Sex: Female
  Weight: 97.5 kg

DRUGS (5)
  1. SINGULAIR [Concomitant]
  2. GENERAL ANESTHESIA [Concomitant]
  3. OCELLA [Suspect]
     Indication: PRODUCT USED FOR UNKNOWN INDICATION
     Dosage: PHARMACY RECORDS: OCELLA DISPENSED. FIRST DATE WAS ON 27-JUL-2008 AND LAST DATE WAS 09-DEC-2008.
     Route: 048
     Dates: start: 20080701, end: 20081201
  4. ACIPHEX [Concomitant]
  5. YAZ [Suspect]
     Indication: PRODUCT USED FOR UNKNOWN INDICATION
     Route: 048

REACTIONS (8)
  - VOMITING [None]
  - ABDOMINAL TENDERNESS [None]
  - CHOLELITHIASIS [None]
  - NAUSEA [None]
  - CHOLECYSTITIS CHRONIC [None]
  - ABDOMINAL DISCOMFORT [None]
  - EPIGASTRIC DISCOMFORT [None]
  - ABDOMINAL PAIN UPPER [None]
